FAERS Safety Report 6897026-5 (Version None)
Quarter: 2010Q3

REPORT INFORMATION
  Report Type: 
  Country: None (occurrence: None)
  Receive Date: 20100802
  Receipt Date: 20070318
  Transmission Date: 20110219
  Serious: No
  Sender: FDA-Public Use
  Company Number: US-PFIZER INC-2007022623

PATIENT
  Sex: Female
  Weight: 59 kg

DRUGS (7)
  1. LYRICA [Suspect]
     Indication: NEURALGIA
     Dates: start: 20061001
  2. MORPHINE [Concomitant]
  3. LEXAPRO [Concomitant]
  4. TRAZODONE [Concomitant]
  5. LEVOTHROID [Concomitant]
  6. REGLAN [Concomitant]
  7. CHANTIX [Concomitant]

REACTIONS (5)
  - COGNITIVE DISORDER [None]
  - CONFUSIONAL STATE [None]
  - DIPLOPIA [None]
  - DISTURBANCE IN ATTENTION [None]
  - HYPOAESTHESIA [None]
